FAERS Safety Report 17114157 (Version 1)
Quarter: 2019Q4

REPORT INFORMATION
  Report Type: Spontaneous
  Country: US (occurrence: US)
  Receive Date: 20191205
  Receipt Date: 20191205
  Transmission Date: 20200122
  Serious: No
  Sender: FDA-Public Use
  Company Number: US-BIOGEN-2019BI00812553

PATIENT
  Age: 35 Year
  Sex: Female

DRUGS (1)
  1. TYSABRI [Suspect]
     Active Substance: NATALIZUMAB
     Indication: MULTIPLE SCLEROSIS
     Route: 042
     Dates: start: 20151102

REACTIONS (10)
  - Burning sensation [Unknown]
  - Fatigue [Unknown]
  - Asthenia [Unknown]
  - Product preparation issue [Unknown]
  - Incorrect product administration duration [Unknown]
  - Cerebral disorder [Unknown]
  - Incorrect drug administration rate [Unknown]
  - Overdose [Unknown]
  - Palpitations [Unknown]
  - Malaise [Unknown]

NARRATIVE: CASE EVENT DATE: 20191126
